FAERS Safety Report 12872710 (Version 1)
Quarter: 2016Q4

REPORT INFORMATION
  Report Type: Spontaneous
  Country: US (occurrence: US)
  Receive Date: 20161021
  Receipt Date: 20161021
  Transmission Date: 20170207
  Serious: No
  Sender: FDA-Public Use
  Company Number: US-BAYER-2016-195427

PATIENT
  Age: 47 Year
  Sex: Female

DRUGS (4)
  1. NIFEDIPINE. [Suspect]
     Active Substance: NIFEDIPINE
     Dosage: 30 MG, TID
  2. NIFEDIPINE. [Suspect]
     Active Substance: NIFEDIPINE
     Dosage: 90 MG, UNK
  3. NIFEDIPINE. [Suspect]
     Active Substance: NIFEDIPINE
     Dosage: UNK, UNK (NIFEDIPINE WAS TAPERED)
  4. ACARBOSE. [Suspect]
     Active Substance: ACARBOSE
     Dosage: 25 MG, UNK (BEFORE EACH MEAL)

REACTIONS (2)
  - Abdominal discomfort [None]
  - Drug intolerance [None]
